FAERS Safety Report 6143599-X (Version None)
Quarter: 2009Q2

REPORT INFORMATION
  Report Type: 
  Country: None (occurrence: None)
  Receive Date: 20090403
  Receipt Date: 20090323
  Transmission Date: 20091009
  Serious: Yes (Hospitalization, Other)
  Sender: FDA-Public Use
  Company Number: DE-ELI_LILLY_AND_COMPANY-DE200903003755

PATIENT
  Age: 67 Year
  Sex: Male
  Weight: 73 kg

DRUGS (2)
  1. GEMCITABINE HCL [Suspect]
     Indication: PANCREATIC CARCINOMA METASTATIC
     Dosage: 1000 MG/M2, ON DAY 1,8,15,22,29,36,42
     Route: 065
  2. GEMCITABINE HCL [Suspect]
     Dosage: 1000 MG/M2, ON DAY 1,8,15
     Route: 065

REACTIONS (2)
  - CATHETER SEPSIS [None]
  - THROMBOTIC MICROANGIOPATHY [None]
